FAERS Safety Report 9315037 (Version 4)
Quarter: 2013Q3

REPORT INFORMATION
  Report Type: Report from Study
  Country: US (occurrence: US)
  Receive Date: 20130529
  Receipt Date: 20130729
  Transmission Date: 20140515
  Serious: Yes (Hospitalization)
  Sender: FDA-Public Use
  Company Number: US-MERCK-1305USA009383

PATIENT
  Age: 36 Year
  Sex: Female
  Weight: 77.51 kg

DRUGS (18)
  1. MK-2206 [Suspect]
     Indication: BREAST CANCER
     Dosage: 135 MG, QW
     Route: 048
     Dates: start: 20130411, end: 20130502
  2. PACLITAXEL [Suspect]
     Indication: BREAST CANCER
     Dosage: 80 MG/M2, QW
     Route: 042
     Dates: start: 20130411, end: 20130502
  3. TRASTUZUMAB [Suspect]
     Indication: BREAST CANCER
     Dosage: 2 MG/KG, QW
     Route: 042
     Dates: start: 20130411, end: 20130509
  4. DEXAMETHASONE [Suspect]
     Indication: PREMEDICATION
     Dosage: 2 X WEEK, TAKE 8 MG AT BED TIME THE NIGHT BEFORE CHEMOTHERAPY
     Route: 048
     Dates: start: 20130410
  5. PREPARATION H HEMORRHOIDAL [Suspect]
     Indication: HAEMORRHOIDS
     Dosage: UNK, PRN
     Route: 061
     Dates: start: 2002
  6. CLINDAMYCIN [Concomitant]
     Indication: RASH
     Dosage: 2 X DAY
     Route: 061
     Dates: start: 20130423
  7. FILGRASTIM [Concomitant]
     Indication: CHEMOTHERAPY
     Dosage: 300 MCG/0.5 ML ONCE DAILY
     Route: 058
     Dates: start: 20130411
  8. FILGRASTIM [Concomitant]
     Indication: NEUTROPENIA
  9. IBUPROFEN [Concomitant]
     Indication: PAIN
     Dosage: 1 TAB EVERY 12 HOURS AS NEEDED
     Route: 048
     Dates: start: 2002
  10. LEUPROLIDE ACETATE [Concomitant]
     Indication: PROPHYLAXIS
     Dosage: 1 X MONTH
     Route: 030
     Dates: start: 20130322
  11. EMLA [Concomitant]
     Indication: PROPHYLAXIS
     Dosage: APPLY TO AFFECTED AREA AS NEEDED
     Route: 061
     Dates: start: 20130311
  12. LORAZEPAM [Concomitant]
     Indication: ANXIETY
     Dosage: 0.5 TO 1 TABS BY MOUTH EVERY SIX HOURS AS NEEDED
     Route: 048
     Dates: start: 20130311
  13. LORAZEPAM [Concomitant]
     Indication: NAUSEA
     Dosage: 1 TAB BY MOUTH  EVERY FOUR HOURS AS NEEDED (PRIOR TO BIOPSY)
     Route: 048
  14. LORAZEPAM [Concomitant]
     Indication: SLEEP DISORDER
  15. OXYCODONE [Concomitant]
     Indication: CATHETER PLACEMENT
     Dosage: EVERY 6 HOURS AS NEEDED
     Route: 048
     Dates: start: 20130327
  16. PROCHLORPERAZINE [Concomitant]
     Indication: NAUSEA
     Dosage: 1 SUPPOSITORY (25 MG) EVERY 8-12 HOURS AS NEEDED
     Route: 054
     Dates: start: 20130411
  17. PERCOCET [Concomitant]
     Indication: HAEMORRHOIDS
     Dosage: 1 TAB EVERY FOUR HOURS AS NEEDED. NOT TO EXEED 10 TABLETS PER ANY 24 HOURS
     Route: 048
     Dates: start: 20130508
  18. PROCHLORPERAZINE [Concomitant]
     Indication: NAUSEA
     Dosage: UNK
     Route: 048

REACTIONS (1)
  - Perirectal abscess [Recovered/Resolved]
